FAERS Safety Report 20672419 (Version 2)
Quarter: 2022Q2

REPORT INFORMATION
  Report Type: Spontaneous
  Country: US (occurrence: US)
  Receive Date: 20220405
  Receipt Date: 20220418
  Transmission Date: 20220721
  Serious: No
  Sender: FDA-Public Use
  Company Number: US-Ipsen Biopharmaceuticals, Inc.-2022-08679

PATIENT
  Age: 60 Year
  Sex: Female

DRUGS (1)
  1. DYSPORT [Suspect]
     Active Substance: ABOBOTULINUMTOXINA
     Indication: Skin cosmetic procedure
     Dosage: DOSE NOT REPORTED
     Route: 065

REACTIONS (8)
  - Tremor [Unknown]
  - Myalgia [Unknown]
  - Headache [Unknown]
  - Nausea [Unknown]
  - Decreased appetite [Unknown]
  - Pain [Unknown]
  - Blood pressure decreased [Unknown]
  - Dehydration [Unknown]
